FAERS Safety Report 6501261-5 (Version None)
Quarter: 2009Q4

REPORT INFORMATION
  Report Type: 
  Country: None (occurrence: None)
  Receive Date: 20091216
  Receipt Date: 20091208
  Transmission Date: 20100525
  Serious: Yes (Other)
  Sender: FDA-Public Use
  Company Number: JP-PFIZER INC-2009308182

PATIENT

DRUGS (1)
  1. ZITHROMAC SR [Suspect]
     Dosage: 2G/DAY
     Route: 048

REACTIONS (1)
  - RHABDOMYOLYSIS [None]
